FAERS Safety Report 25681810 (Version 1)
Quarter: 2025Q3

REPORT INFORMATION
  Report Type: Spontaneous
  Country: US (occurrence: US)
  Receive Date: 20250814
  Receipt Date: 20250814
  Transmission Date: 20251021
  Serious: No
  Sender: DR REDDYS
  Company Number: US-DRL-USA-USA/2025/08/011936

PATIENT
  Age: 20 Year
  Sex: Male

DRUGS (3)
  1. CYCLOSPORINE [Suspect]
     Active Substance: CYCLOSPORINE
     Indication: Dermatitis atopic
  2. PREDNISONE [Concomitant]
     Active Substance: PREDNISONE
     Indication: Dermatitis atopic
  3. METHOTREXATE [Concomitant]
     Active Substance: METHOTREXATE
     Indication: Dermatitis atopic

REACTIONS (1)
  - Drug ineffective for unapproved indication [Unknown]
